FAERS Safety Report 24964023 (Version 1)
Quarter: 2025Q1

REPORT INFORMATION
  Report Type: Spontaneous
  Country: BR (occurrence: BR)
  Receive Date: 20250213
  Receipt Date: 20250213
  Transmission Date: 20250409
  Serious: Yes (Other)
  Sender: Phathom Pharmaceuticals
  Company Number: BR-PHATHOM PHARMACEUTICALS INC.-2025PHT00267

PATIENT
  Age: 86 Year
  Sex: Female

DRUGS (3)
  1. VONOPRAZAN FUMARATE [Suspect]
     Active Substance: VONOPRAZAN FUMARATE
     Indication: Gastritis
     Dosage: 20 MILLIGRAM, QD
     Route: 048
  2. VONOPRAZAN FUMARATE [Suspect]
     Active Substance: VONOPRAZAN FUMARATE
     Indication: Ulcer
     Dosage: 20 MILLIGRAM, QD
     Route: 048
  3. VONOPRAZAN FUMARATE [Suspect]
     Active Substance: VONOPRAZAN FUMARATE
     Indication: Gastrooesophageal reflux disease

REACTIONS (5)
  - Neoplasm malignant [Unknown]
  - Cough [Unknown]
  - Incorrect product administration duration [Unknown]
  - Ulcer [Unknown]
  - Inappropriate schedule of product administration [Unknown]
